FAERS Safety Report 11381109 (Version 1)
Quarter: 2015Q3

REPORT INFORMATION
  Report Type: Spontaneous
  Country: US (occurrence: None)
  Receive Date: 20150813
  Receipt Date: 20150813
  Transmission Date: 20151125
  Serious: Yes (Other)
  Sender: FDA-Public Use
  Company Number: None

PATIENT
  Age: 59 Year
  Sex: Female
  Weight: 87.9 kg

DRUGS (1)
  1. LEVOTHYROXINE 137 MCG UNSURE [Suspect]
     Active Substance: LEVOTHYROXINE
     Indication: HYPOTHYROIDISM
     Route: 048
     Dates: start: 20120911, end: 20131023

REACTIONS (6)
  - Disturbance in attention [None]
  - Fatigue [None]
  - Irritability [None]
  - Anxiety [None]
  - Dry mouth [None]
  - Emotional distress [None]

NARRATIVE: CASE EVENT DATE: 20120911
